FAERS Safety Report 7134721-7 (Version None)
Quarter: 2010Q4

REPORT INFORMATION
  Report Type: 
  Country: None (occurrence: None)
  Receive Date: 20101203
  Receipt Date: 20101119
  Transmission Date: 20110411
  Serious: Yes (Hospitalization, Other)
  Sender: FDA-Public Use
  Company Number: PHHY2010US78815

PATIENT
  Age: 71 Year
  Sex: Female

DRUGS (2)
  1. RIVASTIGMINE [Suspect]
     Dosage: 4.6 MG, QD
     Route: 062
  2. RIVASTIGMINE [Suspect]
     Dosage: 9 PATCHES

REACTIONS (15)
  - ABDOMINAL PAIN [None]
  - ASTHENIA [None]
  - BLOOD PRESSURE INCREASED [None]
  - BRADYCARDIA [None]
  - CHOLINERGIC SYNDROME [None]
  - DIARRHOEA [None]
  - DRUG TOXICITY [None]
  - GASTROINTESTINAL SOUNDS ABNORMAL [None]
  - HYPERHIDROSIS [None]
  - MIOSIS [None]
  - NAUSEA [None]
  - OVERDOSE [None]
  - SOMNOLENCE [None]
  - VOMITING [None]
  - WRONG TECHNIQUE IN DRUG USAGE PROCESS [None]
